FAERS Safety Report 9048349 (Version 1)
Quarter: 2013Q1

REPORT INFORMATION
  Report Type: Spontaneous
  Country: US (occurrence: US)
  Receive Date: 20130204
  Receipt Date: 20130204
  Transmission Date: 20140127
  Serious: No
  Sender: FDA-Public Use
  Company Number: US-AMGEN-USASP2012084114

PATIENT
  Age: 67 Year
  Sex: Female

DRUGS (4)
  1. ENBREL [Suspect]
     Indication: PSORIASIS
     Dosage: 25 MG, 2 TIMES/WK
     Dates: start: 20001101
  2. ENBREL [Suspect]
     Indication: PSORIATIC ARTHROPATHY
  3. REMICADE [Suspect]
     Dosage: UNK
  4. METHOTREXATE [Concomitant]
     Dosage: 2.5 MG, TWO TABLETS ONCE WEEKLY INITIALLY, THEN 3 TABLETS ONCE WEEKLY

REACTIONS (5)
  - Arthritis [Not Recovered/Not Resolved]
  - Skin fissures [Not Recovered/Not Resolved]
  - Bone pain [Unknown]
  - Arthralgia [Unknown]
  - Psoriasis [Not Recovered/Not Resolved]
